FAERS Safety Report 5116809-5 (Version None)
Quarter: 2006Q3

REPORT INFORMATION
  Report Type: 
  Country: None (occurrence: None)
  Receive Date: 20060928
  Receipt Date: 20060915
  Transmission Date: 20061208
  Serious: Yes (Hospitalization)
  Sender: FDA-Public Use
  Company Number: SG-BRISTOL-MYERS SQUIBB COMPANY-13514559

PATIENT
  Age: 55 Year
  Sex: Male

DRUGS (6)
  1. ENTECAVIR [Suspect]
     Route: 048
     Dates: start: 20050804
  2. TACROLIMUS [Concomitant]
  3. ADEFOVIR DIPIVOXIL KIT [Concomitant]
  4. MYCOPHENOLATE MOFETIL [Concomitant]
  5. CIPROFLOXACIN [Concomitant]
  6. LOSEC [Concomitant]

REACTIONS (1)
  - CENTRAL NERVOUS SYSTEM LYMPHOMA [None]
